FAERS Safety Report 7180079-7 (Version None)
Quarter: 2010Q4

REPORT INFORMATION
  Report Type: 
  Country: None (occurrence: None)
  Receive Date: 20101208
  Receipt Date: 20101202
  Transmission Date: 20110411
  Serious: Yes (Hospitalization)
  Sender: FDA-Public Use
  Company Number: TRP_07219_2010

PATIENT
  Sex: Male

DRUGS (2)
  1. INFERGEN [Suspect]
     Indication: HEPATITIS C
     Dosage: (15 UG QD SUBCUTANEOUS)
     Route: 058
     Dates: start: 20100430
  2. RIBAPAK 600 MG (NOT SPECIFIED) [Suspect]
     Indication: HEPATITIS C
     Dosage: (600 MG BID ORAL)
     Route: 048
     Dates: start: 20100430

REACTIONS (11)
  - ANIMAL BITE [None]
  - DEPRESSION [None]
  - EPISTAXIS [None]
  - ERYTHEMA [None]
  - FATIGUE [None]
  - FUNGAL SKIN INFECTION [None]
  - INFECTED BITES [None]
  - INJECTION SITE PAIN [None]
  - INSOMNIA [None]
  - SKIN DISORDER [None]
  - SKIN EXFOLIATION [None]
